FAERS Safety Report 5057568-4 (Version None)
Quarter: 2006Q3

REPORT INFORMATION
  Report Type: 
  Country: None (occurrence: None)
  Receive Date: 20060721
  Receipt Date: 20051121
  Transmission Date: 20061208
  Serious: No
  Sender: FDA-Public Use
  Company Number: US-GLAXOSMITHKLINE-A0583892A

PATIENT
  Sex: Female

DRUGS (2)
  1. AVANDIA [Suspect]
     Dosage: 4MG PER DAY
     Route: 048
  2. GLUCOTROL XL [Concomitant]
     Dosage: 20MG PER DAY
     Route: 065
     Dates: start: 20010101

REACTIONS (4)
  - ARTHRALGIA [None]
  - FLUID RETENTION [None]
  - SWELLING [None]
  - WEIGHT INCREASED [None]
